FAERS Safety Report 13638092 (Version 2)
Quarter: 2017Q3

REPORT INFORMATION
  Report Type: Report from Study
  Country: US (occurrence: US)
  Receive Date: 20170609
  Receipt Date: 20170714
  Transmission Date: 20171127
  Serious: Yes (Other)
  Sender: FDA-Public Use
  Company Number: US-ELI_LILLY_AND_COMPANY-US201705008728

PATIENT
  Age: 56 Year
  Sex: Female

DRUGS (6)
  1. IXEKIZUMAB [Suspect]
     Active Substance: IXEKIZUMAB
     Indication: PSORIASIS
     Dosage: 160 MG, OTHER
     Route: 058
     Dates: start: 20170509
  2. IXEKIZUMAB [Suspect]
     Active Substance: IXEKIZUMAB
     Dosage: 80 MG, UNKNOWN
     Route: 058
     Dates: start: 20170609
  3. HYDROCHLOROTHIAZIDE. [Concomitant]
     Active Substance: HYDROCHLOROTHIAZIDE
     Indication: PRODUCT USED FOR UNKNOWN INDICATION
     Route: 065
  4. IXEKIZUMAB [Suspect]
     Active Substance: IXEKIZUMAB
     Dosage: 80 MG, UNKNOWN
     Route: 058
     Dates: start: 20170523
  5. METOPROLOL. [Concomitant]
     Active Substance: METOPROLOL
     Indication: PRODUCT USED FOR UNKNOWN INDICATION
     Route: 065
  6. SYNTHROID [Concomitant]
     Active Substance: LEVOTHYROXINE SODIUM
     Indication: PRODUCT USED FOR UNKNOWN INDICATION
     Route: 065

REACTIONS (18)
  - Injection site inflammation [Recovered/Resolved]
  - Injection site warmth [Unknown]
  - Injection site pruritus [Unknown]
  - Discomfort [Recovered/Resolved]
  - Injection site mass [Recovering/Resolving]
  - Injection site rash [Not Recovered/Not Resolved]
  - Injection site reaction [Recovered/Resolved]
  - Injection site mass [Unknown]
  - Injection site erythema [Recovered/Resolved]
  - Injection site erythema [Unknown]
  - Injection site swelling [Recovered/Resolved]
  - Injection site induration [Recovered/Resolved]
  - Injection site pain [Unknown]
  - Diarrhoea [Unknown]
  - Arthralgia [Unknown]
  - Injection site pruritus [Recovering/Resolving]
  - Injection site swelling [Unknown]
  - Gait disturbance [Recovered/Resolved]

NARRATIVE: CASE EVENT DATE: 201705
